FAERS Safety Report 11336676 (Version 1)
Quarter: 2015Q3

REPORT INFORMATION
  Report Type: Report from Study
  Country: AU (occurrence: AU)
  Receive Date: 20150804
  Receipt Date: 20150804
  Transmission Date: 20151125
  Serious: Yes (Hospitalization)
  Sender: FDA-Public Use
  Company Number: AU-009507513-1508AUS000440

PATIENT
  Age: 75 Year
  Sex: Female
  Weight: 67.4 kg

DRUGS (10)
  1. COD LIVER OIL [Concomitant]
     Active Substance: COD LIVER OIL
     Indication: OSTEOARTHRITIS
     Dosage: UNK
     Dates: start: 1994
  2. PANADOL [Concomitant]
     Active Substance: ACETAMINOPHEN
     Indication: OSTEOARTHRITIS
     Dosage: UNK
     Dates: start: 1994
  3. ZOLINZA [Suspect]
     Active Substance: VORINOSTAT
     Dosage: 300 MG, 5 X PER WEEK
     Route: 048
     Dates: start: 20150528
  4. CO-DIOVAN [Concomitant]
     Active Substance: HYDROCHLOROTHIAZIDE\VALSARTAN
     Indication: HYPERTENSION
     Dosage: UNK
     Dates: start: 1994, end: 20150526
  5. EUMOVATE [Concomitant]
     Active Substance: CLOBETASONE BUTYRATE
     Indication: FUNGAL INFECTION
     Dosage: UNK
     Dates: start: 20141202
  6. ZOLINZA [Suspect]
     Active Substance: VORINOSTAT
     Indication: T-CELL LYMPHOMA
     Dosage: 400 MG, QD
     Route: 048
     Dates: start: 20150205, end: 20150429
  7. ERGOCALCIFEROL. [Concomitant]
     Active Substance: ERGOCALCIFEROL
     Indication: VITAMIN D DEFICIENCY
     Dosage: UNK
     Dates: start: 201401
  8. MOVICOL [Concomitant]
     Active Substance: POLYETHYLENE GLYCOL 3350\POTASSIUM CHLORIDE\SODIUM BICARBONATE\SODIUM CHLORIDE
     Indication: CONSTIPATION
     Dosage: UNK
     Dates: start: 20150402
  9. ZOLINZA [Suspect]
     Active Substance: VORINOSTAT
     Dosage: 300 MG, QD
     Route: 048
     Dates: start: 20150430, end: 20150527
  10. CEPHALEXIN. [Concomitant]
     Active Substance: CEPHALEXIN
     Indication: STAPHYLOCOCCAL INFECTION
     Dosage: UNK
     Dates: start: 20150512, end: 20150708

REACTIONS (1)
  - Gastroenteritis [Recovered/Resolved]

NARRATIVE: CASE EVENT DATE: 20150530
